FAERS Safety Report 9141333 (Version 1)
Quarter: 2013Q1

REPORT INFORMATION
  Report Type: Spontaneous
  Country: US (occurrence: US)
  Receive Date: 20130305
  Receipt Date: 20130305
  Transmission Date: 20140127
  Serious: Yes (Hospitalization)
  Sender: FDA-Public Use
  Company Number: US-AMGEN-USASP2013009854

PATIENT
  Sex: Male

DRUGS (1)
  1. ENBREL [Suspect]
     Indication: RHEUMATOID ARTHRITIS
     Dosage: 50 MG, QWK
     Dates: start: 20110201, end: 201301

REACTIONS (5)
  - Localised infection [Not Recovered/Not Resolved]
  - Diabetes mellitus [Unknown]
  - Blister [Unknown]
  - Erythema [Unknown]
  - Rheumatoid nodule [Unknown]
